FAERS Safety Report 25804472 (Version 3)
Quarter: 2025Q4

REPORT INFORMATION
  Report Type: Report from Study
  Country: CO (occurrence: CO)
  Receive Date: 20250915
  Receipt Date: 20251111
  Transmission Date: 20260118
  Serious: Yes (Hospitalization, Other)
  Sender: NOVARTIS
  Company Number: CO-002147023-NVSC2025CO115825

PATIENT
  Sex: Male
  Weight: 45 kg

DRUGS (3)
  1. COSENTYX [Suspect]
     Active Substance: SECUKINUMAB
     Indication: Ankylosing spondylitis
     Dosage: 300 MG, QW
     Route: 058
     Dates: start: 20250527
  2. COSENTYX [Suspect]
     Active Substance: SECUKINUMAB
     Dosage: 300 MG, QMO (THIRD DOSE)
     Route: 058
     Dates: start: 202506
  3. COSENTYX [Suspect]
     Active Substance: SECUKINUMAB
     Dosage: 300 MG (EACH WEEK)
     Route: 065

REACTIONS (8)
  - Musculoskeletal stiffness [Unknown]
  - Gait inability [Unknown]
  - Wound [Unknown]
  - Small intestinal perforation [Unknown]
  - Movement disorder [Unknown]
  - Back pain [Unknown]
  - Body height decreased [Unknown]
  - Gastrointestinal disorder [Unknown]
